FAERS Safety Report 12764147 (Version 1)
Quarter: 2016Q3

REPORT INFORMATION
  Report Type: Spontaneous
  Country: JP (occurrence: JP)
  Receive Date: 20160920
  Receipt Date: 20160920
  Transmission Date: 20161109
  Serious: Yes (Other)
  Sender: FDA-Public Use
  Company Number: JP-OTSUKA-02100-JPN-07-0430

PATIENT
  Age: 89 Year
  Sex: Female
  Weight: 38 kg

DRUGS (2)
  1. SHAKUYAKUKANZOTO [Concomitant]
     Active Substance: HERBALS
     Indication: MUSCLE SPASTICITY
     Dosage: 2.5 G, BID
     Route: 048
     Dates: start: 20070713, end: 20070727
  2. PLETAAL POWDER 20% [Suspect]
     Active Substance: CILOSTAZOL
     Indication: PERIPHERAL ARTERIAL OCCLUSIVE DISEASE
     Dosage: 100 MG, BID
     Route: 048
     Dates: start: 20070713, end: 20070727

REACTIONS (3)
  - Blood potassium decreased [None]
  - Cardiac failure [Recovered/Resolved]
  - Haemoglobin decreased [None]

NARRATIVE: CASE EVENT DATE: 20070801
